FAERS Safety Report 8311951 (Version 2)
Quarter: 2013Q1

REPORT INFORMATION
  Report Type: Spontaneous
  Country: FR (occurrence: FR)
  Receive Date: 20111227
  Receipt Date: 20130313
  Transmission Date: 20140127
  Serious: Yes (Life-Threatening)
  Sender: FDA-Public Use
  Company Number: FR-SANOFI-AVENTIS-2011SA083626

PATIENT
  Age: 34 Year
  Sex: Female

DRUGS (3)
  1. RIFADINE [Suspect]
     Indication: PRODUCT USED FOR UNKNOWN INDICATION
     Route: 048
     Dates: start: 20080809
  2. PIRILENE [Suspect]
     Indication: PRODUCT USED FOR UNKNOWN INDICATION
     Route: 048
     Dates: start: 20080809
  3. RIMIFON [Concomitant]
     Route: 048
     Dates: start: 20080809

REACTIONS (1)
  - Hepatitis fulminant [Recovered/Resolved with Sequelae]
